FAERS Safety Report 4790423-3 (Version None)
Quarter: 2005Q4

REPORT INFORMATION
  Report Type: 
  Country: None (occurrence: None)
  Receive Date: 20051005
  Receipt Date: 20050922
  Transmission Date: 20060501
  Serious: Yes (Other)
  Sender: FDA-Public Use
  Company Number: 430029M05USA

PATIENT
  Sex: Male

DRUGS (1)
  1. NOVANTRONE [Suspect]
     Indication: MULTIPLE SCLEROSIS

REACTIONS (3)
  - ACUTE PROMYELOCYTIC LEUKAEMIA [None]
  - ANAEMIA [None]
  - PLATELET COUNT DECREASED [None]
